FAERS Safety Report 20238596 (Version 5)
Quarter: 2022Q1

REPORT INFORMATION
  Report Type: Spontaneous
  Country: US (occurrence: US)
  Receive Date: 20211228
  Receipt Date: 20220208
  Transmission Date: 20220423
  Serious: Yes (Other)
  Sender: FDA-Public Use
  Company Number: US-ORGANON-O2112USA002442

PATIENT
  Age: 36 Year
  Sex: Female
  Weight: 107.93 kg

DRUGS (1)
  1. NEXPLANON [Suspect]
     Active Substance: ETONOGESTREL
     Indication: Contraception
     Dosage: 1 ROD (68 MILLIGRAM), LEFT UPPER ARM
     Route: 059
     Dates: start: 20211207, end: 20211223

REACTIONS (3)
  - Device expulsion [Recovered/Resolved]
  - Device placement issue [Recovered/Resolved]
  - Implant site erythema [Unknown]

NARRATIVE: CASE EVENT DATE: 20211207
